FAERS Safety Report 24039730 (Version 1)
Quarter: 2024Q3

REPORT INFORMATION
  Report Type: Spontaneous
  Country: TR (occurrence: TR)
  Receive Date: 20240702
  Receipt Date: 20240702
  Transmission Date: 20241017
  Serious: Yes (Hospitalization, Other)
  Sender: RANBAXY
  Company Number: TR-SUN PHARMACEUTICAL INDUSTRIES LTD-2024R1-453619

PATIENT
  Age: 60 Year
  Sex: Female

DRUGS (12)
  1. LITHIUM [Suspect]
     Active Substance: LITHIUM
     Indication: Bipolar disorder
     Dosage: UNK
     Route: 065
  2. LITHIUM [Suspect]
     Active Substance: LITHIUM
     Dosage: 1200 MILLIGRAM, DAILY
     Route: 065
  3. LITHIUM [Suspect]
     Active Substance: LITHIUM
     Dosage: 600 MILLIGRAM, DAILY
     Route: 065
  4. LITHIUM [Suspect]
     Active Substance: LITHIUM
     Dosage: 300 MILLIGRAM, ON ALTERNATE DAYS
     Route: 065
  5. QUETIAPINE [Concomitant]
     Active Substance: QUETIAPINE
     Indication: Bipolar disorder
     Dosage: 100 MILLIGRAM, DAILY
     Route: 065
  6. ALPRAZOLAM [Concomitant]
     Active Substance: ALPRAZOLAM
     Indication: Bipolar disorder
     Dosage: 1 MILLIGRAM, DAILY
     Route: 065
  7. MIRTAZAPINE [Concomitant]
     Active Substance: MIRTAZAPINE
     Indication: Bipolar disorder
     Dosage: 15 MILLIGRAM, DAILY
     Route: 065
  8. TRIFLUOPERAZINE [Concomitant]
     Active Substance: TRIFLUOPERAZINE HYDROCHLORIDE
     Indication: Bipolar disorder
     Dosage: 1 MILLIGRAM, DAILY
     Route: 065
  9. OLANZAPINE [Concomitant]
     Active Substance: OLANZAPINE
     Indication: Depressive symptom
     Dosage: 5 MILLIGRAM, DAILY
     Route: 065
  10. OLANZAPINE [Concomitant]
     Active Substance: OLANZAPINE
     Indication: Psychotic disorder
     Dosage: 10 MILLIGRAM, DAILY
     Route: 065
  11. SERTRALINE [Concomitant]
     Active Substance: SERTRALINE HYDROCHLORIDE
     Indication: Depressive symptom
     Dosage: 25 MILLIGRAM, DAILY
     Route: 065
  12. SERTRALINE [Concomitant]
     Active Substance: SERTRALINE HYDROCHLORIDE
     Indication: Psychotic disorder

REACTIONS (3)
  - Toxicity to various agents [Recovering/Resolving]
  - Neurotoxicity [Recovering/Resolving]
  - Catatonia [Recovering/Resolving]
